FAERS Safety Report 9169005 (Version 3)
Quarter: 2013Q4

REPORT INFORMATION
  Report Type: Spontaneous
  Country: US (occurrence: US)
  Receive Date: 20130318
  Receipt Date: 20131230
  Transmission Date: 20140711
  Serious: Yes (Hospitalization, Other)
  Sender: FDA-Public Use
  Company Number: US-009507513-1303USA007539

PATIENT
  Sex: Male
  Weight: 77.98 kg

DRUGS (10)
  1. FOSAMAX [Suspect]
     Indication: OSTEOPOROSIS
     Dosage: 70 MG, QW
     Route: 048
     Dates: start: 2001, end: 201010
  2. FOSAMAX PLUS D [Suspect]
     Indication: OSTEOPOROSIS
     Dosage: 2800IU
     Route: 048
     Dates: start: 20060312
  3. ALENDRONATE SODIUM [Suspect]
     Indication: OSTEOPOROSIS
     Dosage: 70 MG, QW
     Route: 048
     Dates: start: 200001
  4. ONE-A-DAY ESSENTIAL VITAMINS [Concomitant]
     Dosage: QD
     Dates: start: 1983
  5. CALCIUM (UNSPECIFIED) [Concomitant]
     Dosage: 1000-1500 MG, QD
     Dates: start: 1983
  6. OMEGA-3 MARINE TRIGLYCERIDES [Concomitant]
     Dosage: 600 MG, QD
     Dates: start: 1983
  7. ASCORBIC ACID [Concomitant]
     Dosage: 500 MG, QD
     Dates: start: 1983
  8. VITAMIN E [Concomitant]
     Dosage: 500 MG, QD
     Dates: start: 1983
  9. VITAMIN D (UNSPECIFIED) [Concomitant]
     Dosage: 400IU-1000IU, QD
     Dates: start: 1983
  10. PHYTONADIONE [Concomitant]
     Dosage: 500 MG, QD
     Dates: start: 1983

REACTIONS (27)
  - Femur fracture [Unknown]
  - Osteonecrosis [Unknown]
  - Pineal parenchymal neoplasm malignant [Unknown]
  - Surgery [Unknown]
  - Malignant melanoma [Unknown]
  - Low turnover osteopathy [Unknown]
  - Compression fracture [Unknown]
  - Bone disorder [Not Recovered/Not Resolved]
  - Spinal fracture [Unknown]
  - Enthesopathy [Unknown]
  - Bone disorder [Unknown]
  - Bone marrow oedema [Unknown]
  - Hydrocephalus [Unknown]
  - Hypercholesterolaemia [Unknown]
  - Weight decreased [Unknown]
  - Pain [Not Recovered/Not Resolved]
  - Meniscus injury [Unknown]
  - Synovial cyst [Unknown]
  - Osteoarthritis [Unknown]
  - Joint effusion [Unknown]
  - Meniscus injury [Unknown]
  - Skin lesion excision [Unknown]
  - Tonsillectomy [Unknown]
  - Appendicectomy [Unknown]
  - Oesophageal spasm [Unknown]
  - Drug ineffective [Unknown]
  - Joint swelling [Unknown]
